FAERS Safety Report 4812059-8 (Version None)
Quarter: 2005Q4

REPORT INFORMATION
  Report Type: 
  Country: None (occurrence: None)
  Receive Date: 20051028
  Receipt Date: 20041026
  Transmission Date: 20060501
  Serious: No
  Sender: FDA-Public Use
  Company Number: US-GLAXOSMITHKLINE-A0531314A

PATIENT
  Age: 37 Year
  Sex: Female

DRUGS (7)
  1. ADVAIR DISKUS 100/50 [Suspect]
     Indication: ASTHMA
     Dosage: 1PUFF TWICE PER DAY
     Route: 055
  2. NASONEX [Concomitant]
  3. RHINOCORT [Concomitant]
  4. ASTELIN [Concomitant]
  5. ALLEGRA [Concomitant]
  6. MOTRIN [Concomitant]
  7. ALBUTEROL [Concomitant]

REACTIONS (3)
  - DYSGEUSIA [None]
  - DYSPNOEA [None]
  - PHARMACEUTICAL PRODUCT COMPLAINT [None]
